FAERS Safety Report 7889210-9 (Version None)
Quarter: 2011Q4

REPORT INFORMATION
  Report Type: 
  Country: None (occurrence: None)
  Receive Date: 20111103
  Receipt Date: 20111024
  Transmission Date: 20120403
  Serious: Yes (Other)
  Sender: FDA-Public Use
  Company Number: KR-MERCK-1110KOR00036

PATIENT
  Sex: Female

DRUGS (1)
  1. JANUMET [Suspect]
     Indication: DIABETES MELLITUS
     Route: 065
     Dates: start: 20110501

REACTIONS (4)
  - BLADDER CYST [None]
  - RASH [None]
  - BLADDER CANCER [None]
  - RASH GENERALISED [None]
